FAERS Safety Report 23329273 (Version 1)
Quarter: 2023Q4

REPORT INFORMATION
  Report Type: Spontaneous
  Country: US (occurrence: US)
  Receive Date: 20231222
  Receipt Date: 20231222
  Transmission Date: 20240110
  Serious: No
  Sender: FDA-Public Use
  Company Number: US-AUROBINDO-AUR-APL-2022-051104

PATIENT
  Age: 68 Year
  Sex: Female

DRUGS (6)
  1. AMOXICILLIN [Interacting]
     Active Substance: AMOXICILLIN
     Indication: Product used for unknown indication
     Dosage: 875 MILLIGRAM, TWO TIMES A DAY (1 TABLET OF 875 MG IN THE MORNING AND 1 TABLET OF 875 MG IN THE NIGH
     Route: 065
  2. OLANZAPINE [Interacting]
     Active Substance: OLANZAPINE
     Indication: Hallucination
     Dosage: 5 MILLIGRAM, TWO TIMES A DAY (5 MG IN THE MORNING AND 5 MG AT NIGHT)
     Route: 065
  3. MUCINEX [Suspect]
     Active Substance: GUAIFENESIN
     Indication: Product used for unknown indication
     Dosage: 2 DOSAGE FORM, TWO TIMES A DAY (1 TABLET IN THE MORNING AND ONE IN THE NIGHT)
     Route: 065
  4. BRONCHOFEN [Concomitant]
     Indication: Bronchitis
     Dosage: 3 TEASPOON EVERY NIGHT
     Route: 065
  5. DIVALPROEX SODIUM [Concomitant]
     Active Substance: DIVALPROEX SODIUM
     Indication: Product used for unknown indication
     Dosage: UNK
     Route: 065
  6. LEVOXYL [Concomitant]
     Active Substance: LEVOTHYROXINE SODIUM
     Indication: Hypothyroidism
     Dosage: UNK
     Route: 065

REACTIONS (4)
  - Nervousness [Unknown]
  - Anxiety [Unknown]
  - Drug interaction [Unknown]
  - Tremor [Recovering/Resolving]

NARRATIVE: CASE EVENT DATE: 20221001
